FAERS Safety Report 8521720-3 (Version None)
Quarter: 2012Q3

REPORT INFORMATION
  Report Type: 
  Country: None (occurrence: None)
  Receive Date: 20120719
  Receipt Date: 20120713
  Transmission Date: 20120928
  Serious: Yes (Hospitalization, Other)
  Sender: FDA-Public Use
  Company Number: PHHY2012AU060611

PATIENT
  Age: 51 Year
  Sex: Male

DRUGS (6)
  1. BEVACIZUMAB [Concomitant]
  2. IRINOTECAN HCL [Suspect]
     Indication: COLON CANCER STAGE III
     Dates: end: 20091201
  3. LEUCOVORIN CALCIUM [Suspect]
     Indication: COLON CANCER STAGE III
     Dates: start: 20091201
  4. FLUOROURACIL [Suspect]
     Indication: COLON CANCER STAGE III
     Dates: start: 20091201
  5. AMG 386 [Suspect]
     Indication: COLON CANCER STAGE III
     Dates: end: 20090901
  6. CEDIRANIB [Concomitant]

REACTIONS (8)
  - MOBILITY DECREASED [None]
  - LYMPHADENOPATHY [None]
  - MUSCULAR WEAKNESS [None]
  - NEOPLASM MALIGNANT [None]
  - OEDEMA PERIPHERAL [None]
  - GUILLAIN-BARRE SYNDROME [None]
  - SENSORY LOSS [None]
  - PARAESTHESIA [None]
